FAERS Safety Report 19656518 (Version 2)
Quarter: 2023Q2

REPORT INFORMATION
  Report Type: Report from Study
  Country: IT (occurrence: IT)
  Receive Date: 20210804
  Receipt Date: 20230426
  Transmission Date: 20230721
  Serious: Yes (Hospitalization, Other)
  Sender: FDA-Public Use
  Company Number: IT-TAKEDA-IT201733637

PATIENT
  Age: 39 Year
  Sex: Male
  Weight: 70 kg

DRUGS (36)
  1. ADVATE [Suspect]
     Active Substance: ANTIHEMOPHILIC FACTOR, HUMAN RECOMBINANT
     Indication: Factor VIII deficiency
     Dosage: UNK
     Route: 042
     Dates: start: 20151118
  2. ADVATE [Suspect]
     Active Substance: ANTIHEMOPHILIC FACTOR, HUMAN RECOMBINANT
     Indication: Factor VIII deficiency
     Dosage: UNK
     Route: 042
     Dates: start: 20151118
  3. ADVATE [Suspect]
     Active Substance: ANTIHEMOPHILIC FACTOR, HUMAN RECOMBINANT
     Indication: Factor VIII deficiency
     Dosage: UNK
     Route: 042
     Dates: start: 20151118
  4. ADVATE [Suspect]
     Active Substance: ANTIHEMOPHILIC FACTOR, HUMAN RECOMBINANT
     Indication: Prophylaxis
     Dosage: 2000 INTERNATIONAL UNIT, QD
     Route: 065
     Dates: start: 20160912, end: 20160916
  5. ADVATE [Suspect]
     Active Substance: ANTIHEMOPHILIC FACTOR, HUMAN RECOMBINANT
     Indication: Prophylaxis
     Dosage: 2000 INTERNATIONAL UNIT, QD
     Route: 065
     Dates: start: 20160912, end: 20160916
  6. ADVATE [Suspect]
     Active Substance: ANTIHEMOPHILIC FACTOR, HUMAN RECOMBINANT
     Indication: Prophylaxis
     Dosage: 2000 INTERNATIONAL UNIT, QD
     Route: 065
     Dates: start: 20160912, end: 20160916
  7. ADVATE [Suspect]
     Active Substance: ANTIHEMOPHILIC FACTOR, HUMAN RECOMBINANT
     Indication: Abdominal pain upper
     Dosage: 2000 INTERNATIONAL UNIT, BID
     Route: 065
     Dates: start: 20160916, end: 20160926
  8. ADVATE [Suspect]
     Active Substance: ANTIHEMOPHILIC FACTOR, HUMAN RECOMBINANT
     Indication: Abdominal pain upper
     Dosage: 2000 INTERNATIONAL UNIT, BID
     Route: 065
     Dates: start: 20160916, end: 20160926
  9. ADVATE [Suspect]
     Active Substance: ANTIHEMOPHILIC FACTOR, HUMAN RECOMBINANT
     Indication: Abdominal pain upper
     Dosage: 2000 INTERNATIONAL UNIT, BID
     Route: 065
     Dates: start: 20160916, end: 20160926
  10. ADVATE [Suspect]
     Active Substance: ANTIHEMOPHILIC FACTOR, HUMAN RECOMBINANT
     Indication: Swelling
     Dosage: 4000 INTERNATIONAL UNIT, SINGLE
     Route: 042
     Dates: start: 20171003, end: 20171003
  11. ADVATE [Suspect]
     Active Substance: ANTIHEMOPHILIC FACTOR, HUMAN RECOMBINANT
     Indication: Swelling
     Dosage: 4000 INTERNATIONAL UNIT, SINGLE
     Route: 042
     Dates: start: 20171003, end: 20171003
  12. ADVATE [Suspect]
     Active Substance: ANTIHEMOPHILIC FACTOR, HUMAN RECOMBINANT
     Indication: Swelling
     Dosage: 4000 INTERNATIONAL UNIT, SINGLE
     Route: 042
     Dates: start: 20171003, end: 20171003
  13. ADVATE [Suspect]
     Active Substance: ANTIHEMOPHILIC FACTOR, HUMAN RECOMBINANT
     Indication: Joint swelling
     Dosage: 2000 INTERNATIONAL UNIT, Q12H
     Route: 042
     Dates: start: 20171003, end: 20171004
  14. ADVATE [Suspect]
     Active Substance: ANTIHEMOPHILIC FACTOR, HUMAN RECOMBINANT
     Indication: Joint swelling
     Dosage: 2000 INTERNATIONAL UNIT, Q12H
     Route: 042
     Dates: start: 20171003, end: 20171004
  15. ADVATE [Suspect]
     Active Substance: ANTIHEMOPHILIC FACTOR, HUMAN RECOMBINANT
     Indication: Joint swelling
     Dosage: 2000 INTERNATIONAL UNIT, Q12H
     Route: 042
     Dates: start: 20171003, end: 20171004
  16. ADVATE [Suspect]
     Active Substance: ANTIHEMOPHILIC FACTOR, HUMAN RECOMBINANT
     Indication: Arthralgia
     Dosage: 2000 INTERNATIONAL UNIT, QD
     Route: 042
     Dates: start: 20171005, end: 20171009
  17. ADVATE [Suspect]
     Active Substance: ANTIHEMOPHILIC FACTOR, HUMAN RECOMBINANT
     Indication: Arthralgia
     Dosage: 2000 INTERNATIONAL UNIT, QD
     Route: 042
     Dates: start: 20171005, end: 20171009
  18. ADVATE [Suspect]
     Active Substance: ANTIHEMOPHILIC FACTOR, HUMAN RECOMBINANT
     Indication: Arthralgia
     Dosage: 2000 INTERNATIONAL UNIT, QD
     Route: 042
     Dates: start: 20171005, end: 20171009
  19. ADVATE [Suspect]
     Active Substance: ANTIHEMOPHILIC FACTOR, HUMAN RECOMBINANT
     Dosage: 2000 INTERNATIONAL UNIT, QD
     Route: 065
     Dates: start: 20171212, end: 20171217
  20. ADVATE [Suspect]
     Active Substance: ANTIHEMOPHILIC FACTOR, HUMAN RECOMBINANT
     Dosage: 2000 INTERNATIONAL UNIT, QD
     Route: 065
     Dates: start: 20171212, end: 20171217
  21. ADVATE [Suspect]
     Active Substance: ANTIHEMOPHILIC FACTOR, HUMAN RECOMBINANT
     Dosage: 2000 INTERNATIONAL UNIT, QD
     Route: 065
     Dates: start: 20171212, end: 20171217
  22. ADVATE [Suspect]
     Active Substance: ANTIHEMOPHILIC FACTOR, HUMAN RECOMBINANT
     Dosage: 4000 INTERNATIONAL UNIT, QD
     Route: 065
     Dates: start: 20181017, end: 20181017
  23. ADVATE [Suspect]
     Active Substance: ANTIHEMOPHILIC FACTOR, HUMAN RECOMBINANT
     Dosage: 4000 INTERNATIONAL UNIT, QD
     Route: 065
     Dates: start: 20181017, end: 20181017
  24. ADVATE [Suspect]
     Active Substance: ANTIHEMOPHILIC FACTOR, HUMAN RECOMBINANT
     Dosage: 4000 INTERNATIONAL UNIT, QD
     Route: 065
     Dates: start: 20181017, end: 20181017
  25. ADVATE [Suspect]
     Active Substance: ANTIHEMOPHILIC FACTOR, HUMAN RECOMBINANT
     Dosage: 2000 INTERNATIONAL UNIT, BID
     Route: 065
     Dates: start: 20181018, end: 20181028
  26. ADVATE [Suspect]
     Active Substance: ANTIHEMOPHILIC FACTOR, HUMAN RECOMBINANT
     Dosage: 2000 INTERNATIONAL UNIT, BID
     Route: 065
     Dates: start: 20181018, end: 20181028
  27. ADVATE [Suspect]
     Active Substance: ANTIHEMOPHILIC FACTOR, HUMAN RECOMBINANT
     Dosage: 2000 INTERNATIONAL UNIT, BID
     Route: 065
     Dates: start: 20181018, end: 20181028
  28. ADVATE [Suspect]
     Active Substance: ANTIHEMOPHILIC FACTOR, HUMAN RECOMBINANT
     Dosage: 2000 INTERNATIONAL UNIT, QD
     Route: 065
     Dates: start: 20181029, end: 20181104
  29. ADVATE [Suspect]
     Active Substance: ANTIHEMOPHILIC FACTOR, HUMAN RECOMBINANT
     Dosage: 2000 INTERNATIONAL UNIT, QD
     Route: 065
     Dates: start: 20181029, end: 20181104
  30. ADVATE [Suspect]
     Active Substance: ANTIHEMOPHILIC FACTOR, HUMAN RECOMBINANT
     Dosage: 2000 INTERNATIONAL UNIT, QD
     Route: 065
     Dates: start: 20181029, end: 20181104
  31. ACETAMINOPHEN [Concomitant]
     Active Substance: ACETAMINOPHEN
     Indication: Arthralgia
     Dosage: UNK MILLIGRAM, AS NEEDED
     Route: 065
     Dates: start: 20181017, end: 20181018
  32. PREDNISONE [Concomitant]
     Active Substance: PREDNISONE
     Indication: Arthralgia
     Dosage: UNK
     Route: 065
  33. PREDNISOLONE [Concomitant]
     Active Substance: PREDNISOLONE
     Indication: Joint swelling
     Dosage: 12.5 MILLIGRAM, QD
     Route: 065
     Dates: start: 20181019, end: 20181021
  34. PREDNISOLONE [Concomitant]
     Active Substance: PREDNISOLONE
     Indication: Arthralgia
     Dosage: 6.25 MILLIGRAM, QD
     Route: 065
     Dates: start: 20181022, end: 20181024
  35. FLEXART PLUS [Concomitant]
     Indication: Chondropathy
     Dosage: UNK UNK, QD
     Route: 065
     Dates: start: 20160302, end: 20160602
  36. FLEXART PLUS [Concomitant]
     Indication: Haemophilic arthropathy

REACTIONS (1)
  - Cholelithiasis [Recovered/Resolved]
